FAERS Safety Report 11091305 (Version 3)
Quarter: 2015Q3

REPORT INFORMATION
  Report Type: Report from Study
  Country: PL (occurrence: PL)
  Receive Date: 20150505
  Receipt Date: 20150721
  Transmission Date: 20151125
  Serious: Yes (Hospitalization)
  Sender: FDA-Public Use
  Company Number: PL-GLAXOSMITHKLINE-PL2015058619

PATIENT
  Age: 64 Year
  Sex: Male
  Weight: 68 kg

DRUGS (3)
  1. ELTROMBOPAG [Suspect]
     Active Substance: ELTROMBOPAG
     Indication: MYELODYSPLASTIC SYNDROME
     Dosage: 200 MG, QD
     Route: 048
     Dates: start: 20150122, end: 20150219
  2. AZACITIDINE. [Suspect]
     Active Substance: AZACITIDINE
     Indication: MYELODYSPLASTIC SYNDROME
     Dosage: 75 MG/M2, CYC
     Route: 058
     Dates: start: 20150122, end: 20150421
  3. ELTROMBOPAG [Suspect]
     Active Substance: ELTROMBOPAG
     Indication: THROMBOCYTOPENIA
     Dosage: 300 MG, QD
     Route: 048
     Dates: start: 20150220, end: 20150427

REACTIONS (1)
  - Iron overload [Recovering/Resolving]

NARRATIVE: CASE EVENT DATE: 20150427
